FAERS Safety Report 19908769 (Version 1)
Quarter: 2021Q4

REPORT INFORMATION
  Report Type: Spontaneous
  Country: IT (occurrence: IT)
  Receive Date: 20211002
  Receipt Date: 20211002
  Transmission Date: 20220304
  Serious: Yes (Death, Other)
  Sender: FDA-Public Use
  Company Number: IT-JNJFOC-20210948104

PATIENT

DRUGS (1)
  1. IMBRUVICA [Suspect]
     Active Substance: IBRUTINIB
     Indication: Mantle cell lymphoma
     Route: 048

REACTIONS (22)
  - Cardiac failure [Fatal]
  - Acute kidney injury [Fatal]
  - Klebsiella infection [Fatal]
  - COVID-19 pneumonia [Fatal]
  - Neoplasm malignant [Fatal]
  - Atrial fibrillation [Unknown]
  - Septic shock [Unknown]
  - Neutropenia [Unknown]
  - Thrombocytopenia [Unknown]
  - Lung neoplasm malignant [Unknown]
  - Prostate cancer [Unknown]
  - Neuropathy peripheral [Unknown]
  - Haemorrhage [Unknown]
  - Treatment failure [Unknown]
  - Nephropathy toxic [Unknown]
  - Skin toxicity [Unknown]
  - Anaemia [Unknown]
  - Diarrhoea [Unknown]
  - Upper respiratory tract infection [Unknown]
  - Arthralgia [Unknown]
  - Hypertension [Unknown]
  - Muscle spasms [Unknown]
